FAERS Safety Report 7569107-4 (Version None)
Quarter: 2011Q2

REPORT INFORMATION
  Report Type: 
  Country: None (occurrence: None)
  Receive Date: 20110623
  Receipt Date: 20110617
  Transmission Date: 20111010
  Serious: Yes (Hospitalization)
  Sender: FDA-Public Use
  Company Number: PL-ABBOTT-11P-129-0716291-03

PATIENT
  Sex: Female
  Weight: 49 kg

DRUGS (6)
  1. FORLAX [Concomitant]
     Indication: CONSTIPATION
     Route: 048
     Dates: start: 20090818
  2. CLEMASTINUM [Concomitant]
     Indication: PROPHYLAXIS
     Route: 048
     Dates: start: 20090608
  3. METHOTREXATE [Concomitant]
     Indication: CROHN'S DISEASE
     Route: 048
     Dates: start: 20070529
  4. MESALAMINE [Concomitant]
     Indication: CROHN'S DISEASE
     Route: 048
     Dates: start: 20070307
  5. HUMIRA [Suspect]
     Indication: CROHN'S DISEASE
     Route: 058
     Dates: start: 20090627
  6. AC. FOLICUM [Concomitant]
     Indication: PROPHYLAXIS
     Route: 048
     Dates: start: 20070529

REACTIONS (1)
  - ABDOMINAL PAIN [None]
